FAERS Safety Report 17825466 (Version 2)
Quarter: 2020Q2

REPORT INFORMATION
  Report Type: Spontaneous
  Country: FR (occurrence: FR)
  Receive Date: 20200526
  Receipt Date: 20200612
  Transmission Date: 20200714
  Serious: Yes (Other)
  Sender: FDA-Public Use
  Company Number: FR-PFIZER INC-2020206946

PATIENT
  Age: 8 Year
  Sex: Male
  Weight: 26.8 kg

DRUGS (7)
  1. CYTARABINE EBEWE [Suspect]
     Active Substance: CYTARABINE
     Indication: ACUTE MYELOID LEUKAEMIA
     Dosage: 26MAR, 29MAR, 01APR, 08APR, 15APR AND 22APR
     Route: 037
     Dates: start: 20200326, end: 20200422
  2. VANCOMYCIN [Suspect]
     Active Substance: VANCOMYCIN
     Indication: INFECTION
     Dosage: UNK
     Route: 042
     Dates: start: 20200410, end: 20200416
  3. IMIPENEM [Suspect]
     Active Substance: IMIPENEM
     Indication: INFECTION
     Dosage: 700 MG, EVERY 6 HOURS
     Route: 042
     Dates: start: 20200413, end: 20200420
  4. METHOTREXATE. [Suspect]
     Active Substance: METHOTREXATE
     Indication: ACUTE MYELOID LEUKAEMIA
     Dosage: 26MAR, 29MAR, 01APR, 08APR AND 15APR
     Route: 037
     Dates: start: 20200326, end: 20200415
  5. CYTARABINE EBEWE [Suspect]
     Active Substance: CYTARABINE
     Indication: ACUTE MYELOID LEUKAEMIA
     Dosage: 8 MG/M2, CONTINUOUSLY
     Route: 042
     Dates: start: 20200402, end: 20200406
  6. ONDANSETRON ACCORD [Suspect]
     Active Substance: ONDANSETRON
     Indication: PROPHYLAXIS OF NAUSEA AND VOMITING
     Dosage: 8 MG
     Route: 048
     Dates: start: 20200402, end: 20200425
  7. MYLOTARG [Suspect]
     Active Substance: GEMTUZUMAB OZOGAMICIN
     Indication: ACUTE MYELOID LEUKAEMIA
     Dosage: 4.5 MG/M2, SINGLE
     Route: 042
     Dates: start: 20200407, end: 20200407

REACTIONS (1)
  - Pancreatitis [Recovering/Resolving]

NARRATIVE: CASE EVENT DATE: 20200420
